FAERS Safety Report 26169955 (Version 3)
Quarter: 2025Q4

REPORT INFORMATION
  Report Type: Spontaneous
  Country: RU (occurrence: None)
  Receive Date: 20251217
  Receipt Date: 20251230
  Transmission Date: 20260117
  Serious: Yes (Other)
  Sender: ORGANON
  Company Number: RU-ORGANON-O2512RUS001409

PATIENT
  Sex: Female

DRUGS (1)
  1. ETONOGESTREL [Suspect]
     Active Substance: ETONOGESTREL
     Dosage: 1 IMPLANT

REACTIONS (3)
  - Ovarian haemorrhage [Unknown]
  - Ovarian cyst [Unknown]
  - Menstruation irregular [Not Recovered/Not Resolved]
